FAERS Safety Report 24211999 (Version 6)
Quarter: 2024Q4

REPORT INFORMATION
  Report Type: Spontaneous
  Country: AT (occurrence: AT)
  Receive Date: 20240814
  Receipt Date: 20241106
  Transmission Date: 20250114
  Serious: Yes (Hospitalization, Other)
  Sender: SANOFI AVENTIS
  Company Number: AT-SA-SAC20240809000559

PATIENT
  Age: 16 Year
  Sex: Female
  Weight: 33 kg

DRUGS (4)
  1. AVALGLUCOSIDASE ALFA [Suspect]
     Active Substance: AVALGLUCOSIDASE ALFA
     Indication: Glycogen storage disease type II
     Dosage: 350 MG, QOW
     Route: 042
  2. AVALGLUCOSIDASE ALFA [Suspect]
     Active Substance: AVALGLUCOSIDASE ALFA
     Dosage: 350 MG
     Route: 042
  3. AVALGLUCOSIDASE ALFA [Suspect]
     Active Substance: AVALGLUCOSIDASE ALFA
     Dosage: UNK
     Route: 065
  4. PREDNISOLONE SODIUM SUCCINATE [Concomitant]
     Active Substance: PREDNISOLONE SODIUM SUCCINATE
     Indication: Premedication
     Dosage: 70 MG BEFORE START OF ERT
     Dates: start: 20240806

REACTIONS (10)
  - Hypokalaemia [Unknown]
  - Circumoral oedema [Recovered/Resolved]
  - Eyelid oedema [Recovered/Resolved]
  - Rash macular [Recovered/Resolved]
  - Body temperature increased [Unknown]
  - Pruritus [Recovering/Resolving]
  - Ear tube insertion [Unknown]
  - Periorbital oedema [Recovering/Resolving]
  - Hypoacusis [Unknown]
  - Eyelid oedema [Recovering/Resolving]

NARRATIVE: CASE EVENT DATE: 20240806
